FAERS Safety Report 6348463-9 (Version None)
Quarter: 2009Q3

REPORT INFORMATION
  Report Type: 
  Country: None (occurrence: None)
  Receive Date: 20090911
  Receipt Date: 20090901
  Transmission Date: 20100115
  Serious: Yes (Hospitalization)
  Sender: FDA-Public Use
  Company Number: US-BIOGENIDEC-2009BI028480

PATIENT
  Sex: Female

DRUGS (2)
  1. AVONEX [Suspect]
     Indication: MULTIPLE SCLEROSIS
     Route: 030
     Dates: start: 20020606, end: 20080818
  2. AVONEX [Suspect]
     Route: 030
     Dates: start: 20090827

REACTIONS (6)
  - APPENDIX DISORDER [None]
  - CHOLELITHIASIS [None]
  - DECUBITUS ULCER [None]
  - GASTRIC CYST [None]
  - SEPSIS [None]
  - SPINAL DISORDER [None]
